FAERS Safety Report 17613216 (Version 1)
Quarter: 2020Q2

REPORT INFORMATION
  Report Type: Spontaneous
  Country: NO (occurrence: NO)
  Receive Date: 20200401
  Receipt Date: 20200401
  Transmission Date: 20200713
  Serious: Yes (Hospitalization)
  Sender: FDA-Public Use
  Company Number: NO-BAXTER-2020BAX006473

PATIENT
  Age: 25 Year
  Sex: Female

DRUGS (3)
  1. BUSCOPAN [Suspect]
     Active Substance: BUTYLSCOPOLAMINE BROMIDE
     Indication: MAGNETIC RESONANCE IMAGING
     Route: 040
     Dates: start: 20200206, end: 20200206
  2. MANNITOL BAXTER VIAFLO 150 MG/ML INFUSJONSV?SKE, OPPL?SNING [Suspect]
     Active Substance: MANNITOL
     Indication: MAGNETIC RESONANCE IMAGING
     Dosage: STRENGTH OF SOLUTION NOT GIVEN IN REPORT
     Route: 042
     Dates: start: 20200206, end: 20200206
  3. CLARISCAN [Suspect]
     Active Substance: GADOTERATE MEGLUMINE
     Indication: MAGNETIC RESONANCE IMAGING
     Dosage: STRENGTH: 0.5 MMOL/ML
     Route: 042
     Dates: start: 20200206, end: 20200206

REACTIONS (1)
  - Hepatitis acute [Recovered/Resolved]

NARRATIVE: CASE EVENT DATE: 20200206
